FAERS Safety Report 9026700 (Version 1)
Quarter: 2013Q1

REPORT INFORMATION
  Report Type: Spontaneous
  Country: US (occurrence: None)
  Receive Date: 20130114
  Receipt Date: 20130114
  Transmission Date: 20140127
  Serious: Yes (Disabling, Other)
  Sender: FDA-Public Use
  Company Number: None

PATIENT
  Sex: Female
  Weight: 75.75 kg

DRUGS (1)
  1. PROLIA [Suspect]
     Indication: OSTEOPOROSIS
     Dosage: 1 INJ EACH 6 MO
     Route: 058
     Dates: start: 201207

REACTIONS (5)
  - Pain in extremity [None]
  - Asthenia [None]
  - Pain in extremity [None]
  - Muscular weakness [None]
  - Gait disturbance [None]
